FAERS Safety Report 4761292-2 (Version None)
Quarter: 2005Q3

REPORT INFORMATION
  Report Type: 
  Country: None (occurrence: None)
  Receive Date: 20050901
  Receipt Date: 20050819
  Transmission Date: 20060218
  Serious: Yes (Hospitalization)
  Sender: FDA-Public Use
  Company Number: 200510515BNE

PATIENT
  Age: 43 Year
  Sex: Male

DRUGS (7)
  1. ASPIRIN [Suspect]
     Dosage: 7.5 G, TOTAL DAILY,
  2. AMLODIPINE [Suspect]
     Dosage: 560 MG, TOTAL DAILY, ORAL
     Route: 048
  3. FLUOXETINE [Suspect]
     Dosage: 600 MG, TOTAL DAILY, ORAL
     Route: 048
  4. FOLIC ACID [Suspect]
  5. PARACETAMOL [Suspect]
     Dosage: 16 G, TOTAL DAILY,
  6. CITALOPRAM [Suspect]
     Dosage: 250 MG, TOTAL DAILY,
  7. PERINDOPRIL [Suspect]
     Dosage: 120 MG, TOTAL DAILY,

REACTIONS (9)
  - GLASGOW COMA SCALE ABNORMAL [None]
  - HAEMODYNAMIC INSTABILITY [None]
  - HYPOKALAEMIA [None]
  - HYPOTENSION [None]
  - INTENTIONAL MISUSE [None]
  - METABOLIC ACIDOSIS [None]
  - MULTIPLE DRUG OVERDOSE [None]
  - RENAL FAILURE [None]
  - URINARY RETENTION [None]
